FAERS Safety Report 5900558-7 (Version None)
Quarter: 2008Q3

REPORT INFORMATION
  Report Type: 
  Country: None (occurrence: None)
  Receive Date: 20080926
  Receipt Date: 20080917
  Transmission Date: 20090109
  Serious: Yes (Hospitalization, Other)
  Sender: FDA-Public Use
  Company Number: US-B.I. PHARMACEUTICALS,INC./RIDGEFIELD-2008-BP-14154BP

PATIENT
  Sex: Female

DRUGS (7)
  1. MIRAPEX [Suspect]
     Indication: RESTLESS LEGS SYNDROME
     Dosage: 4.5MG
     Route: 048
     Dates: end: 20080101
  2. ADDERALL 10 [Concomitant]
     Indication: MEMORY IMPAIRMENT
  3. LEXAPRO [Concomitant]
     Indication: DEPRESSION
  4. KLONOPIN [Concomitant]
  5. XANASLEX [Concomitant]
     Indication: ARTHRITIS
  6. ATERAX [Concomitant]
     Indication: HYPERSENSITIVITY
  7. VICODIN [Concomitant]
     Indication: PAIN

REACTIONS (17)
  - AGORAPHOBIA [None]
  - AMNESIA [None]
  - ANAEMIA [None]
  - CONFUSIONAL STATE [None]
  - CONTUSION [None]
  - CONVULSION [None]
  - FALL [None]
  - FATIGUE [None]
  - GAMBLING [None]
  - HALLUCINATION [None]
  - PAIN [None]
  - PERSONALITY CHANGE [None]
  - RESTLESSNESS [None]
  - ROAD TRAFFIC ACCIDENT [None]
  - SOMNOLENCE [None]
  - TREMOR [None]
  - VISUAL IMPAIRMENT [None]
